FAERS Safety Report 10028700 (Version 2)
Quarter: 2014Q2

REPORT INFORMATION
  Report Type: Spontaneous
  Country: JP (occurrence: JP)
  Receive Date: 20140321
  Receipt Date: 20140416
  Transmission Date: 20141212
  Serious: Yes (Other)
  Sender: FDA-Public Use
  Company Number: PHHY2014JP034127

PATIENT
  Age: 44 Year
  Sex: Female
  Weight: 52 kg

DRUGS (9)
  1. TEGRETOL [Suspect]
     Indication: SCHIZOPHRENIA
     Dosage: 400 MG, QD
     Route: 048
     Dates: start: 20140207, end: 20140220
  2. CLOZARIL [Suspect]
     Indication: SCHIZOPHRENIA
     Dosage: 50 MG, BID
     Route: 048
     Dates: start: 20140128, end: 20140213
  3. LIMAS [Suspect]
     Indication: SCHIZOPHRENIA
     Dosage: 100 MG, BID
     Route: 048
     Dates: start: 20130709, end: 20140213
  4. REBAMIPIDE [Suspect]
     Indication: GASTRITIS
     Dosage: 100 MG, TID
     Route: 048
     Dates: start: 20140114, end: 20140213
  5. TRIMEBUTINE MALEATE [Concomitant]
     Indication: CONSTIPATION
     Dosage: 600 MG, UNK
     Route: 048
     Dates: start: 20090908
  6. TOUGHMAC E [Concomitant]
     Indication: GASTROENTERITIS
     Dosage: 1.5 G, UNK
     Route: 048
     Dates: start: 20140123
  7. LAC-B [Concomitant]
     Indication: GASTROENTERITIS
     Dosage: 3 DF, UNK
     Route: 048
     Dates: start: 20140123
  8. MAGNESIUM OXIDE [Concomitant]
     Indication: CONSTIPATION
     Dosage: 2 DF, UNK
     Route: 048
     Dates: start: 20140204
  9. SENNOSIDE [Concomitant]
     Indication: CONSTIPATION
     Dosage: 12 MG, UNK
     Route: 048
     Dates: start: 20140207, end: 20140213

REACTIONS (5)
  - Ileus [Recovering/Resolving]
  - Abdominal distension [Unknown]
  - Drug eruption [Recovered/Resolved]
  - Rash generalised [Recovered/Resolved]
  - Glycosylated haemoglobin increased [Not Recovered/Not Resolved]
